FAERS Safety Report 8513575-8 (Version None)
Quarter: 2012Q3

REPORT INFORMATION
  Report Type: 
  Country: None (occurrence: None)
  Receive Date: 20120717
  Receipt Date: 20120714
  Transmission Date: 20120928
  Serious: No
  Sender: FDA-Public Use
  Company Number: US-PFIZER INC-2011224009

PATIENT
  Sex: Female
  Weight: 63.039 kg

DRUGS (2)
  1. XALKORI [Suspect]
     Indication: LUNG NEOPLASM MALIGNANT
     Dosage: 250 MG, 2X/DAY
     Route: 048
     Dates: start: 20110910
  2. CRESTOR [Concomitant]
     Indication: HEART RATE IRREGULAR
     Dosage: UNK

REACTIONS (2)
  - DIARRHOEA [None]
  - NAUSEA [None]
